FAERS Safety Report 8800722 (Version 1)
Quarter: 2012Q4

REPORT INFORMATION
  Report Type: Report from Study
  Country: AT (occurrence: AT)
  Receive Date: 20120921
  Receipt Date: 20120921
  Transmission Date: 20130627
  Serious: Yes (Hospitalization, Other)
  Sender: FDA-Public Use
  Company Number: AT-BAYER-2012-095819

PATIENT
  Sex: Female

DRUGS (1)
  1. MIRENA [Suspect]
     Dosage: 20 mcg/24hr, CONT
     Route: 015

REACTIONS (8)
  - Vaginal haemorrhage [None]
  - Headache [None]
  - Weight increased [None]
  - Dyspepsia [None]
  - Cholelithiasis [None]
  - Ovarian cyst [None]
  - Oophorectomy [None]
  - Breast hyperplasia [None]
